FAERS Safety Report 17772866 (Version 1)
Quarter: 2020Q2

REPORT INFORMATION
  Report Type: Spontaneous
  Country: GB (occurrence: GB)
  Receive Date: 20200512
  Receipt Date: 20200512
  Transmission Date: 20200714
  Serious: Yes (Other)
  Sender: FDA-Public Use
  Company Number: NVSC2020GB128631

PATIENT
  Age: 78 Year
  Sex: Male

DRUGS (1)
  1. HYRIMOZ [Suspect]
     Active Substance: ADALIMUMAB-ADAZ
     Indication: PSORIASIS
     Dosage: 40 MG, QW
     Route: 030
     Dates: start: 20191222, end: 20200203

REACTIONS (6)
  - Nausea [Unknown]
  - Arthralgia [Unknown]
  - Headache [Unknown]
  - Decreased appetite [Unknown]
  - Angioedema [Unknown]
  - Night sweats [Unknown]
